FAERS Safety Report 4482018-6 (Version None)
Quarter: 2004Q4

REPORT INFORMATION
  Report Type: 
  Country: None (occurrence: None)
  Receive Date: 20041020
  Receipt Date: 20040930
  Transmission Date: 20050328
  Serious: Yes (Hospitalization)
  Sender: FDA-Public Use
  Company Number: FR_041004908

PATIENT
  Age: 26 Year
  Sex: Female

DRUGS (2)
  1. GEMZAR [Suspect]
     Indication: GERM CELL CANCER
     Dates: start: 20040901
  2. OXALIPLATIN [Concomitant]

REACTIONS (3)
  - CHOLESTASIS [None]
  - HEPATIC STEATOSIS [None]
  - PANCREATITIS ACUTE [None]
